FAERS Safety Report 4550041-9 (Version None)
Quarter: 2005Q1

REPORT INFORMATION
  Report Type: 
  Country: None (occurrence: None)
  Receive Date: 20050112
  Receipt Date: 20041111
  Transmission Date: 20050727
  Serious: Yes (Disabling, Other)
  Sender: FDA-Public Use
  Company Number: 200421318GDDC

PATIENT
  Age: 74 Year
  Sex: Male
  Weight: 80 kg

DRUGS (9)
  1. RIFAMPICIN [Suspect]
     Indication: ARTHRITIS INFECTIVE
     Route: 048
     Dates: start: 20040922, end: 20041029
  2. FLUCLOXACILLIN [Concomitant]
     Route: 042
     Dates: start: 20041015
  3. CODEINE PHOSPHATE [Concomitant]
     Indication: PAIN
     Dosage: DOSE: UNK
     Route: 048
     Dates: start: 20041023, end: 20041026
  4. FUROSEMIDE [Concomitant]
     Indication: RENAL FAILURE CHRONIC
     Route: 048
     Dates: start: 20041023, end: 20041026
  5. DANAPAROID [Concomitant]
     Indication: THROMBOSIS PROPHYLAXIS
     Dosage: DOSE UNIT: UNITS
     Route: 058
     Dates: start: 20041022
  6. ALBUTEROL [Concomitant]
  7. IPATROPIUM BROMIDE [Concomitant]
  8. INSULIN [Concomitant]
  9. ACETAMINOPHEN [Concomitant]

REACTIONS (2)
  - GENERAL PHYSICAL HEALTH DETERIORATION [None]
  - RED MAN SYNDROME [None]
